FAERS Safety Report 14798378 (Version 1)
Quarter: 2018Q2

REPORT INFORMATION
  Report Type: Spontaneous
  Country: US (occurrence: US)
  Receive Date: 20180424
  Receipt Date: 20180424
  Transmission Date: 20180711
  Serious: No
  Sender: FDA-Public Use
  Company Number: US-TEVA-2018-US-871693

PATIENT
  Sex: Female

DRUGS (2)
  1. LORAZEPAM. [Suspect]
     Active Substance: LORAZEPAM
     Indication: INSOMNIA
  2. LORAZEPAM. [Suspect]
     Active Substance: LORAZEPAM
     Indication: SLEEP APNOEA SYNDROME

REACTIONS (2)
  - Insomnia [Unknown]
  - Drug ineffective [Unknown]

NARRATIVE: CASE EVENT DATE: 20180101
